FAERS Safety Report 13642074 (Version 3)
Quarter: 2017Q2

REPORT INFORMATION
  Report Type: Spontaneous
  Country: US (occurrence: US)
  Receive Date: 20170612
  Receipt Date: 20170628
  Transmission Date: 20170830
  Serious: Yes (Death, Life-Threatening, Hospitalization)
  Sender: FDA-Public Use
  Company Number: US-LPDUSPRD-20170737

PATIENT
  Age: 63 Year
  Sex: Male
  Weight: 103.4 kg

DRUGS (2)
  1. HEPARIN [Concomitant]
     Active Substance: HEPARIN SODIUM
     Dosage: 5000 UNITS (1000 MG/ML)
     Route: 040
  2. VENOFER [Suspect]
     Active Substance: IRON SUCROSE
     Dosage: 50 MG X 3 TOTAL 150 MG
     Route: 040
     Dates: start: 20170520, end: 20170523

REACTIONS (7)
  - Clonus [Fatal]
  - Cardiac arrest [Fatal]
  - Blood pressure decreased [Unknown]
  - Arrhythmia [Fatal]
  - Dyspnoea [Fatal]
  - Respiratory arrest [Fatal]
  - Hypersensitivity [Fatal]

NARRATIVE: CASE EVENT DATE: 20170523
